FAERS Safety Report 23113506 (Version 1)
Quarter: 2023Q4

REPORT INFORMATION
  Report Type: Report from Study
  Country: US (occurrence: US)
  Receive Date: 20231027
  Receipt Date: 20231027
  Transmission Date: 20240109
  Serious: Yes (Other)
  Sender: FDA-Public Use
  Company Number: US-ABBVIE-5430803

PATIENT
  Sex: Female

DRUGS (1)
  1. HUMIRA [Suspect]
     Active Substance: ADALIMUMAB
     Indication: Rheumatoid arthritis
     Dosage: FORM STRENGTH: 40 MILLIGRAM
     Route: 058

REACTIONS (8)
  - Knee arthroplasty [Recovered/Resolved]
  - Fall [Unknown]
  - Catheter placement [Recovering/Resolving]
  - Blood pressure decreased [Recovered/Resolved]
  - Nerve injury [Unknown]
  - Back injury [Unknown]
  - Blood pressure increased [Recovered/Resolved]
  - Arthropathy [Unknown]

NARRATIVE: CASE EVENT DATE: 20220101
